FAERS Safety Report 7917803-9 (Version None)
Quarter: 2011Q4

REPORT INFORMATION
  Report Type: 
  Country: None (occurrence: None)
  Receive Date: 20111116
  Receipt Date: 20110928
  Transmission Date: 20120403
  Serious: Yes (Life-Threatening, Hospitalization)
  Sender: FDA-Public Use
  Company Number: ID-ROCHE-801699

PATIENT
  Sex: Female
  Weight: 51 kg

DRUGS (7)
  1. CHLOROQUINE DIPHOSPHATE [Concomitant]
     Dates: start: 20090514, end: 20110821
  2. CALCIUM PHOSPHATE, DIBASIC [Concomitant]
     Dosage: DRUG REPORTED AS: CAVIT D3
     Dates: start: 20101104, end: 20110821
  3. ACTEMRA [Suspect]
     Indication: RHEUMATOID ARTHRITIS
     Dosage: LAST DOSE PRIOR TO SAE: 04 AUGUST 2011, PERMANENTLY DISCONTINUED
     Route: 042
  4. FOLIC ACID [Concomitant]
     Dates: start: 20100727, end: 20110821
  5. METHOTREXATE [Suspect]
     Indication: RHEUMATOID ARTHRITIS
     Dates: start: 20090616, end: 20110821
  6. PREDNISONE [Concomitant]
     Dates: start: 20100114, end: 20110821
  7. OMEPRAZOLE [Concomitant]
     Dates: start: 20100211, end: 20110821

REACTIONS (5)
  - HYPOALBUMINAEMIA [None]
  - DISSEMINATED INTRAVASCULAR COAGULATION [None]
  - PNEUMONIA [None]
  - ANAEMIA [None]
  - SEPSIS [None]
